FAERS Safety Report 17696868 (Version 2)
Quarter: 2020Q3

REPORT INFORMATION
  Report Type: Spontaneous
  Country: AU (occurrence: AU)
  Receive Date: 20200423
  Receipt Date: 20200804
  Transmission Date: 20201102
  Serious: Yes (Other)
  Sender: FDA-Public Use
  Company Number: AU-ROCHE-2586541

PATIENT
  Sex: Female

DRUGS (8)
  1. ESOMEPRAZOLE. [Concomitant]
     Active Substance: ESOMEPRAZOLE MAGNESIUM
  2. TOCILIZUMAB. [Suspect]
     Active Substance: TOCILIZUMAB
     Indication: PRODUCT USED FOR UNKNOWN INDICATION
     Route: 042
     Dates: start: 201712
  3. IRBESARTAN. [Concomitant]
     Active Substance: IRBESARTAN
  4. PREGABALIN. [Concomitant]
     Active Substance: PREGABALIN
  5. METHOTREXATE. [Concomitant]
     Active Substance: METHOTREXATE
  6. FOLIC ACID. [Concomitant]
     Active Substance: FOLIC ACID
  7. METOCLOPRAMIDE. [Concomitant]
     Active Substance: METOCLOPRAMIDE
  8. ROSUVASTATIN. [Concomitant]
     Active Substance: ROSUVASTATIN

REACTIONS (1)
  - Pancreatitis [Recovered/Resolved]

NARRATIVE: CASE EVENT DATE: 20180721
